FAERS Safety Report 5473942-6 (Version None)
Quarter: 2007Q3

REPORT INFORMATION
  Report Type: 
  Country: None (occurrence: None)
  Receive Date: 20070831
  Receipt Date: 20070627
  Transmission Date: 20080115
  Serious: No
  Sender: FDA-Public Use
  Company Number: 243671

PATIENT
  Sex: Female

DRUGS (4)
  1. LUCENTIS [Suspect]
     Indication: DRUG USE FOR UNKNOWN INDICATION
     Dates: start: 20070101
  2. AVACOR (EQUISETUM, GINKGO BILOBA, HERBAL, HOMEOPATHIC, + DIETARY SUPPL [Concomitant]
  3. PRENIVAL (CHLORMADINONE ACETATE) [Concomitant]
  4. PAXIL [Concomitant]

REACTIONS (1)
  - NASOPHARYNGITIS [None]
